FAERS Safety Report 7401797-9 (Version None)
Quarter: 2011Q2

REPORT INFORMATION
  Report Type: 
  Country: None (occurrence: None)
  Receive Date: 20110408
  Receipt Date: 20110404
  Transmission Date: 20111010
  Serious: No
  Sender: FDA-Public Use
  Company Number: US-PFIZER INC-2010176675

PATIENT
  Sex: Female
  Weight: 68 kg

DRUGS (4)
  1. SEROQUEL [Suspect]
     Dosage: 100 MG, UNK
     Dates: end: 20100401
  2. LYRICA [Suspect]
     Indication: BACK PAIN
     Dosage: 50 MG, 2X/DAY
     Route: 048
     Dates: start: 20100301
  3. SEROQUEL [Suspect]
     Indication: BIPOLAR II DISORDER
     Dosage: 75 MG, 1X/DAY
     Route: 048
     Dates: start: 20100201
  4. LYRICA [Suspect]
     Indication: NEUROPATHY PERIPHERAL
     Dosage: 75 MG, 3X/DAY
     Route: 048

REACTIONS (3)
  - WEIGHT INCREASED [None]
  - WEIGHT DECREASED [None]
  - HUNGER [None]
